FAERS Safety Report 21883466 (Version 1)
Quarter: 2023Q1

REPORT INFORMATION
  Report Type: Report from Study
  Country: US (occurrence: US)
  Receive Date: 20230119
  Receipt Date: 20230119
  Transmission Date: 20230418
  Serious: No
  Sender: FDA-Public Use
  Company Number: US-ABBVIE-4275688

PATIENT
  Age: 75 Year
  Sex: Male

DRUGS (2)
  1. HUMIRA [Suspect]
     Active Substance: ADALIMUMAB
     Indication: Crohn^s disease
     Dosage: CITRATE FREE
     Route: 058
     Dates: start: 20220310
  2. MERCAPTOPURINE [Concomitant]
     Active Substance: MERCAPTOPURINE
     Indication: Product used for unknown indication

REACTIONS (8)
  - Small intestinal stenosis [Unknown]
  - Gastrointestinal inflammation [Not Recovered/Not Resolved]
  - Stress [Unknown]
  - Crohn^s disease [Not Recovered/Not Resolved]
  - Muscle injury [Recovering/Resolving]
  - COVID-19 [Recovered/Resolved]
  - Nausea [Unknown]
  - Blood bilirubin increased [Unknown]

NARRATIVE: CASE EVENT DATE: 20221218
